FAERS Safety Report 4275117-5 (Version None)
Quarter: 2004Q1

REPORT INFORMATION
  Report Type: 
  Country: None (occurrence: None)
  Receive Date: 20040116
  Receipt Date: 20040106
  Transmission Date: 20041129
  Serious: Yes (Death)
  Sender: FDA-Public Use
  Company Number: JP-JNJFOC-20040101861

PATIENT
  Age: 73 Year
  Sex: Male

DRUGS (3)
  1. FENTANYL [Suspect]
     Indication: CANCER PAIN
     Dosage: 5 MG, 1 IN 3 DAY; TRANSDERMAL (SEE IMAGE)
     Route: 062
     Dates: start: 20030709, end: 20030715
  2. FENTANYL [Suspect]
     Indication: CANCER PAIN
     Dosage: 5 MG, 1 IN 3 DAY; TRANSDERMAL (SEE IMAGE)
     Route: 062
     Dates: start: 20030715, end: 20030821
  3. PENTAZOCINE [Concomitant]

REACTIONS (1)
  - DEATH [None]
